FAERS Safety Report 5928033-4 (Version None)
Quarter: 2008Q4

REPORT INFORMATION
  Report Type: 
  Country: None (occurrence: None)
  Receive Date: 20081023
  Receipt Date: 20081017
  Transmission Date: 20090506
  Serious: Yes (Hospitalization, Other)
  Sender: FDA-Public Use
  Company Number: A0730292A

PATIENT
  Age: 52 Year
  Sex: Female
  Weight: 97.3 kg

DRUGS (5)
  1. AVANDIA [Suspect]
     Dosage: 8MG PER DAY
     Route: 048
     Dates: start: 20000129, end: 20051101
  2. HYZAAR [Concomitant]
     Dates: start: 20000609, end: 20060313
  3. GLUCOPHAGE [Concomitant]
     Dates: start: 20000214, end: 20020126
  4. METFORMIN [Concomitant]
     Dates: start: 20041211, end: 20060713
  5. PRANDIN [Concomitant]
     Dates: start: 20000509, end: 20060725

REACTIONS (4)
  - ACUTE CORONARY SYNDROME [None]
  - CORONARY ARTERY DISEASE [None]
  - HYPERLIPIDAEMIA [None]
  - MYOCARDIAL INFARCTION [None]
